FAERS Safety Report 21649406 (Version 1)
Quarter: 2022Q4

REPORT INFORMATION
  Report Type: Spontaneous
  Country: US (occurrence: US)
  Receive Date: 20221128
  Receipt Date: 20221128
  Transmission Date: 20230113
  Serious: No
  Sender: FDA-Public Use
  Company Number: US-009507513-2211USA007414

PATIENT
  Age: 61 Year
  Sex: Female

DRUGS (1)
  1. INTRON A [Suspect]
     Active Substance: INTERFERON ALFA-2B
     Indication: Cutaneous T-cell lymphoma stage IV
     Dosage: UNK

REACTIONS (2)
  - Drug intolerance [Unknown]
  - Off label use [Unknown]
